FAERS Safety Report 8322134-1 (Version None)
Quarter: 2012Q2

REPORT INFORMATION
  Report Type: 
  Country: None (occurrence: None)
  Receive Date: 20120430
  Receipt Date: 20120418
  Transmission Date: 20120825
  Serious: Yes (Other)
  Sender: FDA-Public Use
  Company Number: DE-ROCHE-1051800

PATIENT
  Sex: Female

DRUGS (1)
  1. XOLAIR [Suspect]
     Indication: PRODUCT USED FOR UNKNOWN INDICATION

REACTIONS (5)
  - ARTHRALGIA [None]
  - GLOSSODYNIA [None]
  - BURNING SENSATION [None]
  - MUSCLE CONTRACTIONS INVOLUNTARY [None]
  - MYALGIA [None]
